FAERS Safety Report 11624347 (Version 2)
Quarter: 2015Q4

REPORT INFORMATION
  Report Type: Spontaneous
  Country: AR (occurrence: AR)
  Receive Date: 20151013
  Receipt Date: 20151014
  Transmission Date: 20160304
  Serious: Yes (Death, Other)
  Sender: FDA-Public Use
  Company Number: AR-ELI_LILLY_AND_COMPANY-AR201510002440

PATIENT
  Age: 40 Year
  Sex: Male

DRUGS (1)
  1. MIDAX [Suspect]
     Active Substance: OLANZAPINE
     Indication: PRODUCT USED FOR UNKNOWN INDICATION
     Dosage: UNK, UNKNOWN
     Route: 065
     Dates: start: 2006

REACTIONS (3)
  - Suicide attempt [Unknown]
  - General physical health deterioration [Unknown]
  - Completed suicide [Fatal]

NARRATIVE: CASE EVENT DATE: 2008
